FAERS Safety Report 4438364-5 (Version None)
Quarter: 2004Q3

REPORT INFORMATION
  Report Type: 
  Country: None (occurrence: None)
  Receive Date: 20040831
  Receipt Date: 20040727
  Transmission Date: 20050211
  Serious: No
  Sender: FDA-Public Use
  Company Number: US-GLAXOSMITHKLINE-A0519896A

PATIENT
  Age: 49 Year
  Sex: Male

DRUGS (4)
  1. WELLBUTRIN XL [Suspect]
     Dosage: 150MG PER DAY
     Route: 048
     Dates: start: 20040718
  2. ULTRAM [Suspect]
  3. NORVASC [Concomitant]
  4. ZYRTEC [Concomitant]

REACTIONS (2)
  - DRUG INEFFECTIVE [None]
  - DRUG INTERACTION [None]
